FAERS Safety Report 8358599-9 (Version None)
Quarter: 2012Q2

REPORT INFORMATION
  Report Type: 
  Country: None (occurrence: None)
  Receive Date: 20120514
  Receipt Date: 20120508
  Transmission Date: 20120825
  Serious: Yes (Other)
  Sender: FDA-Public Use
  Company Number: AU-B.I. PHARMACEUTICALS,INC./RIDGEFIELD-2012-AU-00878AU

PATIENT
  Sex: Female

DRUGS (3)
  1. LASIX [Concomitant]
  2. DITROPAN [Concomitant]
  3. PRADAXA [Suspect]
     Indication: CEREBROVASCULAR ACCIDENT PROPHYLAXIS
     Dosage: 220 MG

REACTIONS (4)
  - RECTAL HAEMORRHAGE [None]
  - PULMONARY EMBOLISM [None]
  - DYSPNOEA [None]
  - RECTAL POLYP [None]
